FAERS Safety Report 14173176 (Version 1)
Quarter: 2017Q4

REPORT INFORMATION
  Report Type: Spontaneous
  Country: PL (occurrence: PL)
  Receive Date: 20171109
  Receipt Date: 20171109
  Transmission Date: 20180321
  Serious: Yes (Hospitalization)
  Sender: FDA-Public Use
  Company Number: PL-SUN PHARMACEUTICAL INDUSTRIES LTD-2017R1-153925

PATIENT
  Age: 33 Year
  Sex: Female

DRUGS (1)
  1. OXCARBAZEPINE. [Suspect]
     Active Substance: OXCARBAZEPINE
     Indication: POST-TRAUMATIC EPILEPSY
     Dosage: 300 MG, DAILY
     Route: 065

REACTIONS (2)
  - Hyponatraemia [Recovered/Resolved]
  - Loss of consciousness [Unknown]
